FAERS Safety Report 4838968-1 (Version None)
Quarter: 2005Q4

REPORT INFORMATION
  Report Type: 
  Country: None (occurrence: None)
  Receive Date: 20051129
  Receipt Date: 20051116
  Transmission Date: 20060501
  Serious: Yes (Hospitalization)
  Sender: FDA-Public Use
  Company Number: NZ-SOLVAY-00205003930

PATIENT
  Age: 29539 Day
  Sex: Male
  Weight: 100 kg

DRUGS (3)
  1. DIAMICRON [Concomitant]
     Indication: DIABETES MELLITUS
     Dosage: DAILY DOSE: 30 MILLIGRAM(S)
     Route: 048
  2. COVERSYL [Suspect]
     Indication: ILL-DEFINED DISORDER
     Dosage: DAILY DOSE: 4 MILLIGRAM(S)
     Route: 048
     Dates: start: 20020409
  3. BLINDED THERAPY [PERINDOPRIL/INDAPAMIDE VS PLACEBO] [Suspect]
     Indication: PROPHYLAXIS
     Dosage: DAILY DOSE: 2 DOSAGE FORM
     Route: 048
     Dates: start: 20020528

REACTIONS (3)
  - ASCITES [None]
  - FALL [None]
  - ORTHOSTATIC HYPOTENSION [None]
